FAERS Safety Report 23605917 (Version 1)
Quarter: 2024Q1

REPORT INFORMATION
  Report Type: Spontaneous
  Country: CN (occurrence: CN)
  Receive Date: 20240307
  Receipt Date: 20240307
  Transmission Date: 20240410
  Serious: Yes (Hospitalization, Disabling, Other)
  Sender: FDA-Public Use
  Company Number: CN-009507513-2403CHN000888

PATIENT
  Age: 52 Year
  Sex: Female
  Weight: 42.4 kg

DRUGS (7)
  1. KEYTRUDA [Suspect]
     Active Substance: PEMBROLIZUMAB
     Indication: Cholangiocarcinoma
     Dosage: 200 MG ONCE
     Route: 041
     Dates: start: 20240122, end: 20240122
  2. KEYTRUDA [Suspect]
     Active Substance: PEMBROLIZUMAB
     Dosage: 200 MG ONCE
     Route: 041
     Dates: start: 20240220, end: 20240220
  3. GEMCITABINE HYDROCHLORIDE [Suspect]
     Active Substance: GEMCITABINE HYDROCHLORIDE
     Indication: Cholangiocarcinoma
     Dosage: 1 GRAM ONCE IV DRIP
     Route: 041
     Dates: start: 20240123, end: 20240123
  4. GEMCITABINE HYDROCHLORIDE [Suspect]
     Active Substance: GEMCITABINE HYDROCHLORIDE
     Dosage: 1 GRAM ONCE IV DRIP
     Route: 041
     Dates: start: 20240130, end: 20240130
  5. GEMCITABINE HYDROCHLORIDE [Suspect]
     Active Substance: GEMCITABINE HYDROCHLORIDE
     Dosage: DOSE REDUCED, ONCE
     Route: 041
     Dates: start: 20240220, end: 20240220
  6. CARBOPLATIN [Suspect]
     Active Substance: CARBOPLATIN
     Indication: Cholangiocarcinoma
     Dosage: 0.4 GRAM ONCE IV DRIP.
     Route: 041
     Dates: start: 20240124, end: 20240124
  7. CARBOPLATIN [Suspect]
     Active Substance: CARBOPLATIN
     Dosage: UNKNOWN DOSE, ONCE
     Route: 041
     Dates: start: 20240220, end: 20240220

REACTIONS (9)
  - Myelosuppression [Recovering/Resolving]
  - Mucous stools [Unknown]
  - Palpitations [Unknown]
  - Abdominal pain [Unknown]
  - Abdominal distension [Unknown]
  - Frequent bowel movements [Unknown]
  - Rectal tenesmus [Unknown]
  - Dyschezia [Unknown]
  - Product use in unapproved indication [Unknown]

NARRATIVE: CASE EVENT DATE: 20240122
